FAERS Safety Report 19036647 (Version 4)
Quarter: 2021Q2

REPORT INFORMATION
  Report Type: Spontaneous
  Country: US (occurrence: US)
  Receive Date: 20210322
  Receipt Date: 20210619
  Transmission Date: 20210717
  Serious: Yes (Other)
  Sender: FDA-Public Use
  Company Number: US-LUPIN PHARMACEUTICALS INC.-2021-03356

PATIENT
  Age: 80 Year
  Sex: Male
  Weight: 74.84 kg

DRUGS (2)
  1. NYSTATIN AND TRIAMCINOLONE ACETONIDE CREAM USP, 100,000 UNITS/G; 0.1% [Suspect]
     Active Substance: NYSTATIN\TRIAMCINOLONE ACETONIDE
     Indication: RASH
  2. NYSTATIN AND TRIAMCINOLONE ACETONIDE CREAM USP, 100,000 UNITS/G; 0.1% [Suspect]
     Active Substance: NYSTATIN\TRIAMCINOLONE ACETONIDE
     Indication: INFECTION
     Dosage: UNK UNK, QD (1 TIMES PER DAY), BEDTIME
     Route: 062
     Dates: start: 20210212

REACTIONS (1)
  - Dermatitis allergic [Recovered/Resolved]

NARRATIVE: CASE EVENT DATE: 20210215
